FAERS Safety Report 10371033 (Version 1)
Quarter: 2014Q1

REPORT INFORMATION
  Report Type: Spontaneous
  Country: US (occurrence: None)
  Receive Date: 20140306
  Receipt Date: 20140306
  Transmission Date: 20141002
  Serious: Yes (Other)
  Sender: FDA-Public Use
  Company Number: 163-21880-13083917

PATIENT
  Sex: Male

DRUGS (3)
  1. REVLIMID (LENALIDOMIDE) (CAPSULES) [Suspect]
     Indication: MYELODYSPLASTIC SYNDROME
     Route: 048
     Dates: start: 20080214, end: 20130509
  2. PROCRIT (ERYTHROPOIETIN) (INJECTION) [Concomitant]
  3. ARANESP (DARBEPOETIN ALFA) (INJECTION) [Concomitant]

REACTIONS (3)
  - Neutrophil count decreased [None]
  - Diarrhoea [None]
  - Blood creatinine increased [None]
